FAERS Safety Report 6932997-X (Version None)
Quarter: 2010Q3

REPORT INFORMATION
  Report Type: 
  Country: None (occurrence: None)
  Receive Date: 20100818
  Receipt Date: 20100818
  Transmission Date: 20110219
  Serious: Yes (Other)
  Sender: FDA-Public Use
  Company Number: None

PATIENT
  Sex: Male

DRUGS (4)
  1. SAPHRIS [Suspect]
     Dosage: 5MG (TITRATED) HS
     Dates: start: 20100627
  2. TRILEPTAL [Concomitant]
  3. DEPAKOTE [Concomitant]
  4. PREVACID [Concomitant]

REACTIONS (10)
  - ARTHRALGIA [None]
  - BIPOLAR I DISORDER [None]
  - CONDITION AGGRAVATED [None]
  - CONFUSIONAL STATE [None]
  - HEADACHE [None]
  - INSOMNIA [None]
  - IRRITABILITY [None]
  - MUSCULOSKELETAL STIFFNESS [None]
  - SOMNOLENCE [None]
  - SUICIDAL IDEATION [None]
